FAERS Safety Report 17842497 (Version 2)
Quarter: 2020Q2

REPORT INFORMATION
  Report Type: Spontaneous
  Country: US (occurrence: US)
  Receive Date: 20200529
  Receipt Date: 20200604
  Transmission Date: 20200714
  Serious: No
  Sender: FDA-Public Use
  Company Number: US-PFIZER INC-2020211334

PATIENT
  Age: 26 Year
  Sex: Male

DRUGS (2)
  1. SIGNIFOR LAR [Concomitant]
     Active Substance: PASIREOTIDE PAMOATE
     Dosage: UNK
  2. SOMAVERT [Suspect]
     Active Substance: PEGVISOMANT
     Indication: THYROID DISORDER
     Dosage: 30 MG, WEEKLY
     Route: 058
     Dates: start: 2018

REACTIONS (5)
  - Muscle spasms [Unknown]
  - Product dose omission [Unknown]
  - Off label use [Unknown]
  - Product use in unapproved indication [Unknown]
  - Thyroid mass [Unknown]

NARRATIVE: CASE EVENT DATE: 2018
